FAERS Safety Report 14525871 (Version 3)
Quarter: 2018Q2

REPORT INFORMATION
  Report Type: Report from Study
  Country: SE (occurrence: SE)
  Receive Date: 20180213
  Receipt Date: 20180413
  Transmission Date: 20180711
  Serious: Yes (Death, Life-Threatening, Hospitalization, Other)
  Sender: FDA-Public Use
  Company Number: SE-ASTELLAS-2018US007895

PATIENT
  Age: 46 Year
  Sex: Male

DRUGS (5)
  1. PREDNISOLON                        /00016201/ [Suspect]
     Active Substance: PREDNISOLONE
     Indication: PRODUCT USED FOR UNKNOWN INDICATION
     Route: 048
     Dates: start: 20170425
  2. TACROLIMUS. [Suspect]
     Active Substance: TACROLIMUS
     Indication: PRODUCT USED FOR UNKNOWN INDICATION
     Route: 048
     Dates: start: 20170424
  3. MYCOPHENOLATE MOFETIL. [Suspect]
     Active Substance: MYCOPHENOLATE MOFETIL
     Indication: PRODUCT USED FOR UNKNOWN INDICATION
     Route: 048
     Dates: start: 20170425
  4. TACROLIMUS. [Suspect]
     Active Substance: TACROLIMUS
     Route: 048
  5. TACROLIMUS. [Suspect]
     Active Substance: TACROLIMUS
     Route: 048

REACTIONS (4)
  - Respiratory failure [Fatal]
  - Ischaemic stroke [Not Recovered/Not Resolved]
  - Sepsis [Fatal]
  - Transplant rejection [Not Recovered/Not Resolved]

NARRATIVE: CASE EVENT DATE: 20170505
